FAERS Safety Report 8364675-7 (Version None)
Quarter: 2012Q2

REPORT INFORMATION
  Report Type: 
  Country: None (occurrence: None)
  Receive Date: 20120516
  Receipt Date: 20120510
  Transmission Date: 20120825
  Serious: Yes (Hospitalization)
  Sender: FDA-Public Use
  Company Number: US-BAYER-2012-007063

PATIENT
  Age: 45 Year
  Sex: Female
  Weight: 80.726 kg

DRUGS (5)
  1. IBUPROFEN [Concomitant]
     Dosage: UNK UNK, PRN
     Dates: start: 19900101
  2. PROCHLORPERAZINE [Concomitant]
     Indication: NAUSEA
     Dosage: 25 MG, PRN
     Route: 054
     Dates: start: 20100324
  3. MEPERIDINE HCL [Concomitant]
     Indication: PAIN
     Dosage: 50 MG, PRN
     Route: 048
     Dates: start: 20100324
  4. EMERGEN-C [Concomitant]
     Dosage: UNK
     Dates: start: 20080101
  5. YAZ [Suspect]
     Indication: HORMONE THERAPY
     Dosage: UNK
     Dates: start: 20090101, end: 20100601

REACTIONS (7)
  - INJURY [None]
  - NAUSEA [None]
  - VOMITING [None]
  - CHOLELITHIASIS [None]
  - CHOLECYSTITIS ACUTE [None]
  - GALLBLADDER DISORDER [None]
  - ABDOMINAL PAIN [None]
